FAERS Safety Report 4377408-6 (Version None)
Quarter: 2004Q2

REPORT INFORMATION
  Report Type: 
  Country: None (occurrence: None)
  Receive Date: 20040609
  Receipt Date: 20040430
  Transmission Date: 20050107
  Serious: No
  Sender: FDA-Public Use
  Company Number: 2004212024US

PATIENT
  Age: 76 Year
  Sex: Male

DRUGS (3)
  1. BEXTRA [Suspect]
     Dosage: 10 MG, QD
     Dates: start: 20040429
  2. TYLENOL [Concomitant]
  3. MAVIK [Concomitant]

REACTIONS (1)
  - ABNORMAL SENSATION IN EYE [None]
